FAERS Safety Report 6198432-7 (Version None)
Quarter: 2009Q2

REPORT INFORMATION
  Report Type: 
  Country: None (occurrence: None)
  Receive Date: 20090518
  Receipt Date: 20090219
  Transmission Date: 20091009
  Serious: No
  Sender: FDA-Public Use
  Company Number: WAES 0902USA03576

PATIENT
  Sex: Male

DRUGS (4)
  1. ISENTRESS [Suspect]
     Indication: HIV INFECTION
     Dosage: 400 MG/BID/PO
     Route: 048
     Dates: start: 20081201
  2. INTELENCE [Concomitant]
  3. PREZISTA [Concomitant]
  4. RITONAVIR [Concomitant]

REACTIONS (3)
  - MYOSITIS [None]
  - RASH [None]
  - TENDERNESS [None]
